FAERS Safety Report 24941204 (Version 1)
Quarter: 2025Q1

REPORT INFORMATION
  Report Type: Spontaneous
  Country: CN (occurrence: CN)
  Receive Date: 20250207
  Receipt Date: 20250207
  Transmission Date: 20250409
  Serious: Yes (Other)
  Sender: RANBAXY
  Company Number: CN-SUN PHARMACEUTICAL INDUSTRIES LTD-2025R1-493116

PATIENT
  Age: 55 Year
  Sex: Male

DRUGS (1)
  1. FLURBIPROFEN [Suspect]
     Active Substance: FLURBIPROFEN
     Indication: Anticoagulant therapy
     Route: 065

REACTIONS (1)
  - Spinal epidural haematoma [Recovered/Resolved]
